FAERS Safety Report 18459890 (Version 1)
Quarter: 2020Q4

REPORT INFORMATION
  Report Type: Spontaneous
  Country: PL (occurrence: PL)
  Receive Date: 20201103
  Receipt Date: 20201103
  Transmission Date: 20210114
  Serious: Yes (Other)
  Sender: FDA-Public Use
  Company Number: PL-PURDUE-USA-2020-0173959

PATIENT
  Age: 59 Year
  Sex: Female

DRUGS (4)
  1. FENTANYL. [Suspect]
     Active Substance: FENTANYL
     Indication: NEURALGIA
     Dosage: UNK (ADDITIONAL INFO: TRANSDERMAL THERAPEUTIC SYSTEM)
     Route: 065
  2. FENTANYL. [Suspect]
     Active Substance: FENTANYL
     Indication: SKIN LESION
     Dosage: 25 MCG, Q1H (DOSE OF 25 MICROG PER HOUR; TRANSDERMAL THERAPEUTIC SYSTEM)
     Route: 065
  3. IBUPROFEN. [Suspect]
     Active Substance: IBUPROFEN
     Indication: PAIN
     Dosage: 200 MG, UNK (AT A DOSE OF 200 MG, ABOUT 15 MINUTES AFTER TAKING MORPHINE)
     Route: 065
  4. MORPHINE SULFATE. [Suspect]
     Active Substance: MORPHINE SULFATE
     Indication: BREAKTHROUGH PAIN
     Dosage: 20 MG, Q4H
     Route: 065

REACTIONS (3)
  - Weight decreased [Recovering/Resolving]
  - Decreased appetite [Recovering/Resolving]
  - Drug ineffective [Unknown]
